FAERS Safety Report 8525248-6 (Version None)
Quarter: 2012Q3

REPORT INFORMATION
  Report Type: 
  Country: None (occurrence: None)
  Receive Date: 20120720
  Receipt Date: 20120717
  Transmission Date: 20120928
  Serious: Yes (Death, Other)
  Sender: FDA-Public Use
  Company Number: PHHY2012EC061748

PATIENT
  Sex: Female

DRUGS (1)
  1. STALEVO 100 [Suspect]
     Indication: PARKINSON'S DISEASE
     Dosage: UNK UKN, UNK
     Route: 048
     Dates: start: 20110729

REACTIONS (4)
  - MUSCLE RIGIDITY [None]
  - PNEUMONIA [None]
  - TRISMUS [None]
  - RESPIRATORY ARREST [None]
